FAERS Safety Report 5100871-X (Version None)
Quarter: 2006Q3

REPORT INFORMATION
  Report Type: 
  Country: None (occurrence: None)
  Receive Date: 20060906
  Receipt Date: 20060821
  Transmission Date: 20061208
  Serious: Yes (Other)
  Sender: FDA-Public Use
  Company Number: 2006101413

PATIENT
  Sex: Male
  Weight: 103.4201 kg

DRUGS (9)
  1. VIAGRA [Suspect]
     Indication: ERECTILE DYSFUNCTION
     Dosage: 50 MG (50 MG,AS NECESSARY)
  2. WARFARIN SODIUM [Concomitant]
  3. CRESTOR [Concomitant]
  4. TIZANIDINE HCL [Concomitant]
  5. DARVOCET [Concomitant]
  6. CORGARD [Concomitant]
  7. ALL OTHER THERAPEUTIC PRODUCTS [Concomitant]
  8. OSCAL (CALCIUM CARBONATE) [Concomitant]
  9. ATENOLOL [Concomitant]

REACTIONS (5)
  - DRUG INEFFECTIVE [None]
  - GOITRE [None]
  - HEADACHE [None]
  - PLATELET COUNT DECREASED [None]
  - VISUAL BRIGHTNESS [None]
